FAERS Safety Report 7166712-4 (Version None)
Quarter: 2010Q4

REPORT INFORMATION
  Report Type: 
  Country: None (occurrence: None)
  Receive Date: 20101213
  Receipt Date: 20101213
  Transmission Date: 20110411
  Serious: Yes (Other)
  Sender: FDA-Public Use
  Company Number: None

PATIENT
  Age: 30 Year
  Sex: Female
  Weight: 73.0291 kg

DRUGS (3)
  1. ROLAIDS CHEWABLE TAB [Suspect]
     Indication: COLITIS ULCERATIVE
     Dosage: 1-2 SOFTCHEWS NIGHTLY PO
     Route: 048
  2. ROLAIDS CHEWABLE TAB [Suspect]
     Indication: DYSPEPSIA
     Dosage: 1-2 SOFTCHEWS NIGHTLY PO
     Route: 048
  3. ROLAIDS CHEWABLE TAB [Suspect]
     Indication: FLATULENCE
     Dosage: 1-2 SOFTCHEWS NIGHTLY PO
     Route: 048

REACTIONS (4)
  - COLITIS ULCERATIVE [None]
  - CONDITION AGGRAVATED [None]
  - DYSGEUSIA [None]
  - PRODUCT QUALITY ISSUE [None]
